FAERS Safety Report 6901873-0 (Version None)
Quarter: 2010Q3

REPORT INFORMATION
  Report Type: 
  Country: None (occurrence: None)
  Receive Date: 20100803
  Receipt Date: 20080327
  Transmission Date: 20110219
  Serious: Yes (Other)
  Sender: FDA-Public Use
  Company Number: US-PFIZER INC-2008027930

PATIENT
  Sex: Female
  Weight: 61.363 kg

DRUGS (8)
  1. LYRICA [Suspect]
     Indication: PAIN
     Dates: start: 20080324
  2. THYROLAR [Concomitant]
     Indication: HYPOTHYROIDISM
  3. ZIAC [Concomitant]
  4. LISINOPRIL [Concomitant]
     Indication: HYPERTENSION
  5. PLAVIX [Concomitant]
  6. PREMARIN [Concomitant]
  7. PROTONIX [Concomitant]
  8. REMERON [Concomitant]

REACTIONS (3)
  - CHEST PAIN [None]
  - DYSPNOEA [None]
  - ULCER [None]
